FAERS Safety Report 9348635 (Version 2)
Quarter: 2013Q2

REPORT INFORMATION
  Report Type: Not Available
  Country: FR (occurrence: FR)
  Receive Date: 20130614
  Receipt Date: 20130627
  Transmission Date: 20140414
  Serious: Yes (Hospitalization)
  Sender: FDA-Public Use
  Company Number: FR-NAPPMUNDI-GBR-2013-0014162

PATIENT
  Age: 94 Year
  Sex: Female

DRUGS (5)
  1. OXYCONTIN LP, COMPRIME PELLICULE A LIBERATION PROLONGEE [Suspect]
     Indication: SCIATICA
     Dosage: UNK
     Route: 048
     Dates: end: 20130517
  2. OXYNORMORO COMPRIME ORODISPERSIBLE [Suspect]
     Indication: SCIATICA
     Dosage: UNK
     Route: 048
     Dates: start: 20130518, end: 20130523
  3. FLUDEX                             /00340101/ [Concomitant]
  4. GAVISCON                           /00237601/ [Concomitant]
  5. NEXIUM                             /01479302/ [Concomitant]

REACTIONS (3)
  - Hepatocellular injury [Recovered/Resolved]
  - Cholestasis [Recovered/Resolved]
  - Fatigue [Recovered/Resolved]
